FAERS Safety Report 20724782 (Version 1)
Quarter: 2022Q2

REPORT INFORMATION
  Report Type: Spontaneous
  Country: US (occurrence: None)
  Receive Date: 20220418
  Receipt Date: 20220418
  Transmission Date: 20220720
  Serious: Yes (Disabling)
  Sender: FDA-Public Use
  Company Number: None

PATIENT
  Age: 53 Year
  Sex: Female
  Weight: 99 kg

DRUGS (15)
  1. FIRDAPSE [Suspect]
     Active Substance: AMIFAMPRIDINE PHOSPHATE
     Indication: Myasthenic syndrome
     Dosage: OTHER QUANTITY : 1 TABLET(S);?FREQUENCY : EVERY 6 HOURS;?
     Route: 048
     Dates: start: 20211001, end: 20220417
  2. HYDROXYZINE HYDROCHLORIDE [Concomitant]
     Active Substance: HYDROXYZINE HYDROCHLORIDE
  3. CETIRIZINE HYDROCHLORIDE [Concomitant]
     Active Substance: CETIRIZINE HYDROCHLORIDE
  4. BACLOFEN [Concomitant]
     Active Substance: BACLOFEN
  5. ESTRADIOL [Concomitant]
     Active Substance: ESTRADIOL
  6. LITHYRONINE SODIUM [Concomitant]
  7. LEVOXYL [Concomitant]
     Active Substance: LEVOTHYROXINE SODIUM
  8. LATUDA [Concomitant]
     Active Substance: LURASIDONE HYDROCHLORIDE
  9. PHENTERMINE HYDROCHLORIDE [Concomitant]
     Active Substance: PHENTERMINE HYDROCHLORIDE
  10. RUZURGI [Concomitant]
     Active Substance: AMIFAMPRIDINE
  11. MONTELUKAST SODIUM [Concomitant]
     Active Substance: MONTELUKAST SODIUM
  12. COLLAGEN [Concomitant]
     Active Substance: COLLAGEN
  13. BIOTIN [Concomitant]
     Active Substance: BIOTIN
  14. FISH OIL [Concomitant]
     Active Substance: FISH OIL
  15. VITAMIN D3 [Concomitant]
     Active Substance: CHOLECALCIFEROL

REACTIONS (8)
  - Back pain [None]
  - Arthralgia [None]
  - Insomnia [None]
  - Muscle atrophy [None]
  - Arthralgia [None]
  - Asthenia [None]
  - Lethargy [None]
  - Bone pain [None]

NARRATIVE: CASE EVENT DATE: 20220315
